FAERS Safety Report 25131332 (Version 1)
Quarter: 2025Q1

REPORT INFORMATION
  Report Type: Spontaneous
  Country: US (occurrence: None)
  Receive Date: 20250327
  Receipt Date: 20250327
  Transmission Date: 20250408
  Serious: Yes (Other)
  Sender: FDA-CTU
  Company Number: None

PATIENT
  Age: 59 Year
  Sex: Female
  Weight: 79.65 kg

DRUGS (15)
  1. PREDNISOLONE SODIUM PHOSPHATE [Suspect]
     Active Substance: PREDNISOLONE SODIUM PHOSPHATE
     Indication: Cataract operation
     Dosage: FREQUENCY : 3 TIMES A DAY;?
     Route: 047
     Dates: start: 20250227, end: 20250326
  2. Amlomedipine [Concomitant]
  3. SIMVASTATIN [Concomitant]
     Active Substance: SIMVASTATIN
  4. Pantorprazole [Concomitant]
  5. TOLTERODINE [Concomitant]
     Active Substance: TOLTERODINE
  6. GABAPENTIN [Concomitant]
     Active Substance: GABAPENTIN
  7. HYDROCODONE [Concomitant]
     Active Substance: HYDROCODONE
  8. tizidine [Concomitant]
  9. fluticcasone nasal [Concomitant]
  10. Clobestasol cream [Concomitant]
  11. VENTOLIN [Concomitant]
     Active Substance: ALBUTEROL SULFATE
  12. ESTRADIOL [Concomitant]
     Active Substance: ESTRADIOL
  13. IBUPROFEN [Concomitant]
     Active Substance: IBUPROFEN
  14. ACETAMINOPHEN [Concomitant]
     Active Substance: ACETAMINOPHEN
  15. MAGNESIUM [Concomitant]
     Active Substance: MAGNESIUM

REACTIONS (4)
  - Eye irritation [None]
  - Eye pain [None]
  - Ocular hyperaemia [None]
  - Foreign body sensation in eyes [None]

NARRATIVE: CASE EVENT DATE: 20250228
